FAERS Safety Report 14592036 (Version 1)
Quarter: 2018Q1

REPORT INFORMATION
  Report Type: Spontaneous
  Country: US (occurrence: US)
  Receive Date: 20180301
  Receipt Date: 20180301
  Transmission Date: 20180509
  Serious: Yes (Disabling)
  Sender: FDA-Public Use
  Company Number: None

PATIENT
  Age: 55 Year
  Sex: Female
  Weight: 69.75 kg

DRUGS (7)
  1. MELATONIN [Concomitant]
     Active Substance: MELATONIN
  2. SEROQUEL [Concomitant]
     Active Substance: QUETIAPINE FUMARATE
  3. GABAPENTIN. [Concomitant]
     Active Substance: GABAPENTIN
  4. PRAVASTATIN. [Concomitant]
     Active Substance: PRAVASTATIN
  5. LITHIUM. [Concomitant]
     Active Substance: LITHIUM
  6. MICARDIS [Concomitant]
     Active Substance: TELMISARTAN
  7. LATUDA [Suspect]
     Active Substance: LURASIDONE HYDROCHLORIDE
     Indication: BIPOLAR DISORDER
     Dosage: ?          QUANTITY:1 TABLET(S);?
     Route: 048
     Dates: start: 20171123, end: 20180125

REACTIONS (3)
  - Speech disorder [None]
  - Confusional state [None]
  - Anxiety [None]

NARRATIVE: CASE EVENT DATE: 20171227
